FAERS Safety Report 17332367 (Version 1)
Quarter: 2020Q1

REPORT INFORMATION
  Report Type: Report from Study
  Country: NL (occurrence: NL)
  Receive Date: 20200128
  Receipt Date: 20200128
  Transmission Date: 20200409
  Serious: Yes (Other)
  Sender: FDA-Public Use
  Company Number: NL-MYLANLABS-2020M1009984

PATIENT
  Age: 70 Year
  Sex: Female

DRUGS (18)
  1. CLOBETASOL [Concomitant]
     Active Substance: CLOBETASOL
     Dosage: 0.5 MILLIGRAM PER GRAM, QD
  2. CETOMACROGOL 1000 [Concomitant]
     Dosage: UNK, AS NECESSARY
  3. HYDROXOCOBALAMIN [Concomitant]
     Active Substance: HYDROXOCOBALAMIN
     Dosage: 500 MICROGRAM PER MILLIGRAM
  4. OXYCODONE [Concomitant]
     Active Substance: OXYCODONE
     Dosage: 5 MILLIGRAM, 2D1-2T
  5. DOXYCYCLINE. [Suspect]
     Active Substance: DOXYCYCLINE
     Indication: NONINFECTIVE ENCEPHALITIS
     Dosage: 100 MILLIGRAM
     Route: 065
  6. AFATINIB [Concomitant]
     Active Substance: AFATINIB
     Dosage: 30 MILLIGRAM, QD
  7. TETRACYCLINE [Concomitant]
     Active Substance: TETRACYCLINE
     Dosage: 30 MILLIGRAM PER GRAM, 2D
  8. XGEVA [Suspect]
     Active Substance: DENOSUMAB
     Indication: PROPHYLAXIS
     Dosage: 120 MILLIGRAM, Q4WK
     Route: 065
  9. OXAZEPAM. [Concomitant]
     Active Substance: OXAZEPAM
     Dosage: 10 MILLIGRAM, 3D1T WHEN NECESSARY
  10. FLECAINIDE [Concomitant]
     Active Substance: FLECAINIDE
     Dosage: 50 MILLIGRAM, 2D1T
  11. ACETYLSALICYLIC ACID [Concomitant]
     Active Substance: ASPIRIN
     Dosage: 80 MILLIGRAM, 1D1T
  12. XGEVA [Suspect]
     Active Substance: DENOSUMAB
     Dosage: 120 MILLIGRAM, Q4WK
     Route: 065
     Dates: start: 20190403
  13. VERAPAMIL [Concomitant]
     Active Substance: VERAPAMIL HYDROCHLORIDE
     Dosage: 240 MILLIGRAM, 1D0.5T
  14. DESOXIMETASON [Concomitant]
     Active Substance: DESOXIMETASONE
     Dosage: 2.5 MILLIGRAM PER GRAM, QD
  15. NITROFURANTOIN. [Concomitant]
     Active Substance: NITROFURANTOIN
     Dosage: 50 MILLIGRAM, 4D1C
  16. OMEPRAZOLE. [Concomitant]
     Active Substance: OMEPRAZOLE
     Dosage: 20 MILLIGRAM, 2D1T
  17. VERAPAMIL [Concomitant]
     Active Substance: VERAPAMIL HYDROCHLORIDE
     Dosage: 120 MILLIGRAM, 1D1T
  18. CALCIUM CARBONATE W/COLECALCIFEROL [Concomitant]
     Active Substance: CALCIUM CARBONATE\CHOLECALCIFEROL
     Dosage: 1.25G/440IE (500MG CA) 1D1T

REACTIONS (3)
  - Noninfective encephalitis [Unknown]
  - Diarrhoea [Not Recovered/Not Resolved]
  - Genital hyperaesthesia [Unknown]
